FAERS Safety Report 7732905-8 (Version None)
Quarter: 2011Q3

REPORT INFORMATION
  Report Type: 
  Country: None (occurrence: None)
  Receive Date: 20110902
  Receipt Date: 20110902
  Transmission Date: 20111222
  Serious: Yes (Life-Threatening)
  Sender: FDA-Public Use
  Company Number: None

PATIENT
  Age: 60 Year
  Sex: Female
  Weight: 95 kg

DRUGS (1)
  1. CLAFORAN [Suspect]
     Indication: PNEUMONIA
     Dosage: 1 GRAM Q8H IV  ONE TIME DOSE IN ER
     Route: 042
     Dates: start: 20110819

REACTIONS (2)
  - DYSPNOEA [None]
  - THROAT TIGHTNESS [None]
